FAERS Safety Report 5469575-8 (Version None)
Quarter: 2007Q3

REPORT INFORMATION
  Report Type: 
  Country: None (occurrence: None)
  Receive Date: 20070925
  Receipt Date: 20070925
  Transmission Date: 20080115
  Serious: Yes (Other)
  Sender: FDA-Public Use
  Company Number: None

PATIENT
  Age: 32 Year
  Sex: Female
  Weight: 113.3993 kg

DRUGS (2)
  1. BACTRIM DS [Suspect]
     Indication: NEPHROLITHIASIS
     Dosage: 1 PILL TWICE DAILY PO
     Route: 048
     Dates: start: 20070909, end: 20070909
  2. BACTRIM DS [Suspect]
     Indication: URINARY TRACT INFECTION
     Dosage: 1 PILL TWICE DAILY PO
     Route: 048
     Dates: start: 20070909, end: 20070909

REACTIONS (4)
  - DYSPNOEA [None]
  - LYMPHADENOPATHY [None]
  - PHARYNGOLARYNGEAL PAIN [None]
  - RASH [None]
